FAERS Safety Report 9045020 (Version 1)
Quarter: 2013Q1

REPORT INFORMATION
  Report Type: Report from Study
  Country: US (occurrence: US)
  Receive Date: 20130130
  Receipt Date: 20130130
  Transmission Date: 20140127
  Serious: No
  Sender: FDA-Public Use
  Company Number: US-ABBOTT-12P-163-0961829-00

PATIENT
  Age: 36 Year
  Sex: Male

DRUGS (3)
  1. HUMIRA 40 MG/0.8 ML PEN [Suspect]
     Indication: COLITIS ULCERATIVE
     Dates: start: 201103
  2. IMURAN [Concomitant]
     Indication: COLITIS
  3. PREVACID [Concomitant]
     Indication: DYSPEPSIA

REACTIONS (1)
  - Dry eye [Not Recovered/Not Resolved]
